FAERS Safety Report 5505914-7 (Version None)
Quarter: 2007Q4

REPORT INFORMATION
  Report Type: 
  Country: None (occurrence: None)
  Receive Date: 20071102
  Receipt Date: 20071024
  Transmission Date: 20080405
  Serious: Yes (Other)
  Sender: FDA-Public Use
  Company Number: FR-PFIZER INC-2007090719

PATIENT
  Sex: Male

DRUGS (1)
  1. CHAMPIX [Suspect]
     Dosage: TEXT:1 MG BID EVERY DAY TDD:2 MG

REACTIONS (3)
  - ANGIOEDEMA [None]
  - DYSPHONIA [None]
  - PHARYNGOLARYNGEAL DISCOMFORT [None]
